FAERS Safety Report 5571582-1 (Version None)
Quarter: 2007Q4

REPORT INFORMATION
  Report Type: 
  Country: None (occurrence: None)
  Receive Date: 20071221
  Receipt Date: 20071219
  Transmission Date: 20080405
  Serious: Yes (Hospitalization)
  Sender: FDA-Public Use
  Company Number: US-ELI_LILLY_AND_COMPANY-US200712003312

PATIENT
  Sex: Female

DRUGS (3)
  1. HUMATROPE [Suspect]
     Indication: PITUITARY TUMOUR BENIGN
     Dosage: 0.1 MG, UNKNOWN 1 CLICK
  2. HUMATROPE [Suspect]
     Dosage: 0.1 MG, UNKNOWN
     Dates: start: 20071201
  3. HUMATROPE [Suspect]
     Dosage: UNK, UNKNOWN
     Dates: start: 20071201

REACTIONS (2)
  - BREAST CANCER [None]
  - FATIGUE [None]
